FAERS Safety Report 18798186 (Version 1)
Quarter: 2021Q1

REPORT INFORMATION
  Report Type: Spontaneous
  Country: US (occurrence: US)
  Receive Date: 20210128
  Receipt Date: 20210128
  Transmission Date: 20210419
  Serious: Yes (Other)
  Sender: FDA-Public Use
  Company Number: US-SUN PHARMACEUTICAL INDUSTRIES LTD-2021R1-276347

PATIENT
  Age: 37 Year
  Sex: Male

DRUGS (5)
  1. DULOXETINE. [Suspect]
     Active Substance: DULOXETINE
     Indication: NEURALGIA
     Dosage: 60 MILLIGRAM, DAILY
     Route: 065
  2. GABAPENTIN. [Suspect]
     Active Substance: GABAPENTIN
     Dosage: 300 MILLIGRAM
     Route: 065
  3. PREGABALIN. [Suspect]
     Active Substance: PREGABALIN
     Dosage: 150 MILLIGRAM, BID
     Route: 065
  4. PREGABALIN. [Suspect]
     Active Substance: PREGABALIN
     Indication: NEURALGIA
     Dosage: 150 MILLIGRAM, TID
     Route: 065
  5. GABAPENTIN. [Suspect]
     Active Substance: GABAPENTIN
     Indication: NEURALGIA
     Dosage: 600 MILLIGRAM, QID
     Route: 065

REACTIONS (3)
  - Memory impairment [Recovering/Resolving]
  - Aphasia [Recovering/Resolving]
  - Drug ineffective [Unknown]
